FAERS Safety Report 6037950-9 (Version None)
Quarter: 2009Q1

REPORT INFORMATION
  Report Type: 
  Country: None (occurrence: None)
  Receive Date: 20090115
  Receipt Date: 20090109
  Transmission Date: 20090719
  Serious: Yes (Hospitalization)
  Sender: FDA-Public Use
  Company Number: US-ASTRAZENECA-2009UW00934

PATIENT

DRUGS (2)
  1. PRILOSEC OTC [Suspect]
     Indication: DYSPEPSIA
     Route: 048
  2. PRILOSEC OTC [Suspect]
     Route: 048

REACTIONS (4)
  - CONFUSIONAL STATE [None]
  - DIZZINESS [None]
  - FEELING ABNORMAL [None]
  - HYPERTENSION [None]
